FAERS Safety Report 9477013 (Version 1)
Quarter: 2013Q3

REPORT INFORMATION
  Report Type: Report from Study
  Country: BR (occurrence: BR)
  Receive Date: 20130826
  Receipt Date: 20130826
  Transmission Date: 20140515
  Serious: Yes (Hospitalization)
  Sender: FDA-Public Use
  Company Number: BR-ABBOTT-13P-020-1136232-00

PATIENT
  Age: 55 Year
  Sex: Female
  Weight: 60 kg

DRUGS (5)
  1. HUMIRA [Suspect]
     Indication: RHEUMATOID ARTHRITIS
     Route: 058
     Dates: start: 201108
  2. LOSARTAN [Concomitant]
     Indication: HYPERTENSION
     Route: 048
     Dates: start: 200708
  3. AMLODIPINE [Concomitant]
     Indication: DIURETIC THERAPY
     Route: 048
     Dates: start: 200808
  4. HYALURONIC ACID [Concomitant]
     Indication: ARTHRITIS
     Route: 048
     Dates: start: 201208
  5. GARCINIA MANGOSTANA L (MANGOSELECT) [Concomitant]
     Indication: ARTHRITIS
     Route: 048
     Dates: start: 201208

REACTIONS (4)
  - Intestinal polyp [Recovered/Resolved]
  - Pruritus [Recovered/Resolved]
  - Local swelling [Recovered/Resolved]
  - Helicobacter infection [Recovered/Resolved]
